FAERS Safety Report 4362535-X (Version None)
Quarter: 2004Q2

REPORT INFORMATION
  Report Type: 
  Country: None (occurrence: None)
  Receive Date: 20040517
  Receipt Date: 20040229
  Transmission Date: 20050107
  Serious: No
  Sender: FDA-Public Use
  Company Number: S04-USA-01691-01

PATIENT
  Age: 85 Year
  Sex: Male
  Weight: 99.7913 kg

DRUGS (15)
  1. NAMENDA [Suspect]
     Indication: DEMENTIA ALZHEIMER'S TYPE
     Dosage: 15 MG QD PO
     Route: 048
     Dates: start: 20040302, end: 20040308
  2. NAMENDA [Suspect]
     Indication: DEMENTIA ALZHEIMER'S TYPE
     Dosage: 10 MG BID PO
     Route: 048
     Dates: start: 20040309
  3. NAMENDA [Suspect]
     Indication: DEMENTIA ALZHEIMER'S TYPE
     Dosage: 5 MG QD PO
     Route: 048
     Dates: start: 20040217, end: 20040223
  4. NAMENDA [Suspect]
     Indication: DEMENTIA ALZHEIMER'S TYPE
     Dosage: 10 MG QD PO
     Route: 048
     Dates: start: 20040224, end: 20040301
  5. LASIX [Concomitant]
  6. MIRAPEX [Concomitant]
  7. SINEMET [Concomitant]
  8. ARICEPT [Concomitant]
  9. DARVOCET [Concomitant]
  10. ISOSORBIDE [Concomitant]
  11. POTASSIUM [Concomitant]
  12. NIFEDIPINE [Concomitant]
  13. OXYBUTYNIN [Concomitant]
  14. LORAZEPAM [Concomitant]
  15. SPIRONOLACTONE [Concomitant]

REACTIONS (2)
  - MOOD SWINGS [None]
  - URINARY RETENTION [None]
